FAERS Safety Report 18272414 (Version 1)
Quarter: 2020Q3

REPORT INFORMATION
  Report Type: Spontaneous
  Country: US (occurrence: US)
  Receive Date: 20200916
  Receipt Date: 20200916
  Transmission Date: 20201103
  Serious: Yes (Other)
  Sender: FDA-Public Use
  Company Number: US-JNJFOC-20200905971

PATIENT
  Age: 43 Year
  Sex: Female

DRUGS (2)
  1. REMICADE [Suspect]
     Active Substance: INFLIXIMAB
     Indication: PRODUCT USED FOR UNKNOWN INDICATION
     Route: 042
     Dates: end: 201911
  2. HUMIRA [Suspect]
     Active Substance: ADALIMUMAB
     Indication: CROHN^S DISEASE
     Route: 058
     Dates: start: 20200213

REACTIONS (12)
  - Neuropathy peripheral [Unknown]
  - Paraesthesia [Unknown]
  - Constipation [Recovering/Resolving]
  - Adverse drug reaction [Unknown]
  - Psoriasis [Recovering/Resolving]
  - Hypoaesthesia [Unknown]
  - Abdominal pain [Recovered/Resolved]
  - Menstrual disorder [Unknown]
  - Headache [Unknown]
  - Diarrhoea [Recovering/Resolving]
  - Stress [Unknown]
  - Peripheral swelling [Unknown]

NARRATIVE: CASE EVENT DATE: 2020
